FAERS Safety Report 8663150 (Version 2)
Quarter: 2012Q4

REPORT INFORMATION
  Report Type: Report from Study
  Country: JP (occurrence: JP)
  Receive Date: 20120713
  Receipt Date: 20120920
  Transmission Date: 20130627
  Serious: Yes (Hospitalization)
  Sender: FDA-Public Use
  Company Number: JP-009507513-1207JPN001493

PATIENT
  Age: 63 Year
  Sex: Female
  Weight: 50 kg

DRUGS (9)
  1. PEGINTRON [Suspect]
     Indication: HEPATITIS C
     Dosage: 1.6mcg/kg/week
     Route: 058
     Dates: start: 20120201
  2. REBETOL [Suspect]
     Indication: HEPATITIS C
     Route: 048
     Dates: start: 20120201, end: 20120203
  3. REBETOL [Suspect]
     Dosage: 400 mg, Once
     Route: 048
     Dates: start: 20120214, end: 20120301
  4. REBETOL [Suspect]
     Dosage: 400 UNK, UNK
     Route: 048
     Dates: start: 20120314
  5. TELAPREVIR [Suspect]
     Indication: HEPATITIS C
     Route: 048
     Dates: start: 20120201, end: 20120203
  6. TELAPREVIR [Suspect]
     Route: 048
     Dates: start: 20120220, end: 20120226
  7. TELAPREVIR [Suspect]
     Route: 048
     Dates: start: 20120227, end: 20120301
  8. CORINAEL CR [Concomitant]
     Indication: HYPERTENSION
     Route: 048
  9. THYRADIN-S [Concomitant]
     Indication: HYPOTHYROIDISM
     Dosage: 50 Microgram, Once
     Route: 048

REACTIONS (7)
  - Rhabdomyolysis [Recovered/Resolved]
  - Musculoskeletal stiffness [Recovered/Resolved]
  - Renal disorder [Recovered/Resolved]
  - Urine output decreased [None]
  - Blood creatinine increased [None]
  - Blood urea increased [None]
  - Blood uric acid increased [None]
